FAERS Safety Report 11227594 (Version 1)
Quarter: 2015Q2

REPORT INFORMATION
  Report Type: Spontaneous
  Country: US (occurrence: US)
  Receive Date: 20150630
  Receipt Date: 20150630
  Transmission Date: 20150821
  Serious: Yes (Hospitalization)
  Sender: FDA-Public Use
  Company Number: US-JNJFOC-20150617327

PATIENT
  Age: 36 Year
  Sex: Female
  Weight: 40.82 kg

DRUGS (2)
  1. REMICADE [Suspect]
     Active Substance: INFLIXIMAB
     Indication: CROHN^S DISEASE
     Dosage: INITIATION DOSE
     Route: 042
     Dates: start: 20150608, end: 20150622
  2. REMICADE [Suspect]
     Active Substance: INFLIXIMAB
     Indication: CROHN^S DISEASE
     Route: 042

REACTIONS (9)
  - Chest pain [Unknown]
  - Respiratory disorder [Unknown]
  - Back pain [Unknown]
  - Feeling abnormal [Unknown]
  - Drug ineffective [Unknown]
  - Chills [Unknown]
  - Infusion related reaction [Unknown]
  - Adverse event [Unknown]
  - Weight decreased [Unknown]

NARRATIVE: CASE EVENT DATE: 2015
